FAERS Safety Report 6202984-8 (Version None)
Quarter: 2009Q2

REPORT INFORMATION
  Report Type: 
  Country: None (occurrence: None)
  Receive Date: 20090520
  Receipt Date: 20090504
  Transmission Date: 20091009
  Serious: Yes (Hospitalization, Other)
  Sender: FDA-Public Use
  Company Number: 20090152

PATIENT
  Age: 59 Year
  Sex: Female

DRUGS (2)
  1. EPINEPHRINE [Suspect]
     Indication: HYPOTENSION
     Dosage: 5UG/MIN-20UG/MIN ; INTRAVENOUS
     Route: 042
  2. QUETIAPINE FUMARATE [Concomitant]

REACTIONS (5)
  - DRUG INTERACTION [None]
  - HYPOTENSION [None]
  - OVERDOSE [None]
  - SINUS TACHYCARDIA [None]
  - SOMNOLENCE [None]
